FAERS Safety Report 4363909-3 (Version None)
Quarter: 2004Q2

REPORT INFORMATION
  Report Type: 
  Country: None (occurrence: None)
  Receive Date: 20040525
  Receipt Date: 20040519
  Transmission Date: 20050107
  Serious: Yes (Hospitalization)
  Sender: FDA-Public Use
  Company Number: 200413917US

PATIENT
  Age: 70 Year
  Sex: Male
  Weight: 118.7 kg

DRUGS (2)
  1. TAXOTERE [Suspect]
     Indication: PROSTATE CANCER
     Route: 042
     Dates: start: 20040427, end: 20040511
  2. ADRIAMYCIN PFS [Suspect]
     Indication: PROSTATE CANCER
     Route: 042
     Dates: start: 20040427, end: 20040511

REACTIONS (10)
  - ANAEMIA [None]
  - ARTERIOVENOUS MALFORMATION [None]
  - DIARRHOEA [None]
  - DIVERTICULITIS [None]
  - DIZZINESS POSTURAL [None]
  - EPIGASTRIC DISCOMFORT [None]
  - GASTRITIS [None]
  - LETHARGY [None]
  - NAUSEA [None]
  - POLYP [None]
